FAERS Safety Report 12049772 (Version 1)
Quarter: 2016Q1

REPORT INFORMATION
  Report Type: Spontaneous
  Country: US (occurrence: None)
  Receive Date: 20160208
  Receipt Date: 20160208
  Transmission Date: 20160526
  Serious: No
  Sender: FDA-Public Use
  Company Number: None

PATIENT
  Age: 59 Year
  Sex: Male
  Weight: 74.84 kg

DRUGS (4)
  1. INVOKANA [Suspect]
     Active Substance: CANAGLIFLOZIN
     Indication: BLOOD GLUCOSE INCREASED
     Dosage: I PILL ONCE DAILY TAKEN BY MOUTH
     Route: 048
     Dates: start: 20151104, end: 20160121
  2. ATORVASTATIN [Concomitant]
     Active Substance: ATORVASTATIN
  3. METOPROLOL SUCCINATE ER [Concomitant]
     Active Substance: METOPROLOL SUCCINATE
  4. METFORMIN [Concomitant]
     Active Substance: METFORMIN HYDROCHLORIDE

REACTIONS (17)
  - Dyspnoea [None]
  - Gait disturbance [None]
  - Ketoacidosis [None]
  - Dizziness [None]
  - Metabolic acidosis [None]
  - Mental disorder [None]
  - Memory impairment [None]
  - Asthenia [None]
  - Hypervolaemia [None]
  - Hyperkalaemia [None]
  - Dysstasia [None]
  - Blood glucose increased [None]
  - Dry mouth [None]
  - Tachypnoea [None]
  - Visual acuity reduced [None]
  - Photosensitivity reaction [None]
  - Blood potassium decreased [None]

NARRATIVE: CASE EVENT DATE: 20160122
